FAERS Safety Report 11648825 (Version 2)
Quarter: 2015Q4

REPORT INFORMATION
  Report Type: Spontaneous
  Country: CN (occurrence: CN)
  Receive Date: 20151021
  Receipt Date: 20151029
  Transmission Date: 20160304
  Serious: Yes (Other)
  Sender: FDA-Public Use
  Company Number: CN-SA-2015SA162724

PATIENT
  Age: 57 Year
  Sex: Female

DRUGS (5)
  1. ROSUVASTATIN CALCIUM. [Concomitant]
     Active Substance: ROSUVASTATIN CALCIUM
     Route: 048
     Dates: start: 20150612
  2. PLAVIX [Suspect]
     Active Substance: CLOPIDOGREL BISULFATE
     Indication: CORONARY ARTERY DISEASE
     Route: 048
     Dates: start: 20151021
  3. METOPROLOL [Concomitant]
     Active Substance: METOPROLOL
     Dosage: FORM: SUSTAINED-RELEASE  TABLETS
     Route: 048
     Dates: start: 20150612
  4. CILOSTAZOL. [Suspect]
     Active Substance: CILOSTAZOL
     Route: 048
     Dates: start: 20150612, end: 20151014
  5. PLAVIX [Suspect]
     Active Substance: CLOPIDOGREL BISULFATE
     Indication: CORONARY ARTERY DISEASE
     Route: 048
     Dates: start: 20150612, end: 20151014

REACTIONS (3)
  - Conjunctival haemorrhage [Recovered/Resolved]
  - Ocular hyperaemia [Recovered/Resolved]
  - Vision blurred [Recovered/Resolved]

NARRATIVE: CASE EVENT DATE: 20151014
